FAERS Safety Report 7650115-X (Version None)
Quarter: 2011Q3

REPORT INFORMATION
  Report Type: 
  Country: None (occurrence: None)
  Receive Date: 20110802
  Receipt Date: 20110719
  Transmission Date: 20111222
  Serious: Yes (Hospitalization, Other)
  Sender: FDA-Public Use
  Company Number: US-JNJFOC-20110709637

PATIENT
  Age: 35 Year
  Sex: Female

DRUGS (2)
  1. ABCIXIMAB [Suspect]
     Indication: THROMBECTOMY
     Route: 065
  2. ALTEPLASE [Suspect]
     Indication: THROMBECTOMY
     Route: 065

REACTIONS (2)
  - VENA CAVA INJURY [None]
  - INCORRECT ROUTE OF DRUG ADMINISTRATION [None]
